FAERS Safety Report 7003156-X (Version None)
Quarter: 2010Q3

REPORT INFORMATION
  Report Type: 
  Country: None (occurrence: None)
  Receive Date: 20100920
  Receipt Date: 20091008
  Transmission Date: 20110219
  Serious: No
  Sender: FDA-Public Use
  Company Number: US-ASTRAZENECA-2009SE18904

PATIENT
  Sex: Female
  Weight: 113.4 kg

DRUGS (3)
  1. SEROQUEL [Suspect]
     Route: 048
  2. PROZAC [Concomitant]
  3. AMBIEN [Concomitant]

REACTIONS (5)
  - ASTHENIA [None]
  - DRUG DOSE OMISSION [None]
  - NAUSEA [None]
  - TREMOR [None]
  - VOMITING [None]
